FAERS Safety Report 7977059-8 (Version None)
Quarter: 2011Q4

REPORT INFORMATION
  Report Type: 
  Country: None (occurrence: None)
  Receive Date: 20111213
  Receipt Date: 20111108
  Transmission Date: 20120403
  Serious: No
  Sender: FDA-Public Use
  Company Number: US-AMGEN-USASP2011058454

PATIENT
  Sex: Female

DRUGS (12)
  1. VITAMIN D [Concomitant]
  2. LOSARTAN POTASSIUM [Concomitant]
  3. FISH OIL [Concomitant]
  4. VITAMIN C                          /00008001/ [Concomitant]
  5. SIMVASTATIN [Concomitant]
  6. LUTEIN                             /01638501/ [Concomitant]
  7. SYNTHROID [Concomitant]
  8. ASPIRIN [Concomitant]
  9. RESTASIS [Concomitant]
  10. COENZYME Q10 [Concomitant]
  11. ENBREL [Suspect]
     Indication: RHEUMATOID ARTHRITIS
     Dosage: 50 MG, QWK
     Dates: start: 20110901
  12. CRANBERRY                          /01512301/ [Concomitant]

REACTIONS (2)
  - PRODUCTIVE COUGH [None]
  - ERYTHEMA [None]
